FAERS Safety Report 8539402-0 (Version None)
Quarter: 2012Q3

REPORT INFORMATION
  Report Type: 
  Country: None (occurrence: None)
  Receive Date: 20120726
  Receipt Date: 20120716
  Transmission Date: 20120928
  Serious: Yes (Hospitalization, Other)
  Sender: FDA-Public Use
  Company Number: US-ELI_LILLY_AND_COMPANY-US201109006534

PATIENT
  Sex: Female
  Weight: 57.4 kg

DRUGS (22)
  1. FORTEO [Suspect]
     Dosage: 20 UG, QD
     Route: 058
  2. SINEMET [Concomitant]
     Dosage: UNK, QD
  3. CITRICAL [Concomitant]
     Dosage: UNK, QD
  4. METOPROLOL SUCCINATE [Concomitant]
     Dosage: UNK, QD
  5. CELEXA [Concomitant]
  6. TYLENOL                                 /SCH/ [Concomitant]
  7. AMLODIPINE [Concomitant]
     Dosage: UNK
  8. M.V.I. [Concomitant]
  9. SIMVASTATIN [Concomitant]
  10. BACTRIM [Concomitant]
  11. NEURONTIN [Concomitant]
  12. FORTEO [Suspect]
     Indication: OSTEOPOROSIS
     Dosage: 20 UG, QD
     Route: 058
     Dates: start: 20110101
  13. ASPIRIN [Concomitant]
  14. SENNA-S                            /01035001/ [Concomitant]
  15. LISINOPRIL [Concomitant]
  16. AMBIEN [Concomitant]
  17. STALEVO 100 [Concomitant]
     Dosage: UNK, QD
  18. NITROGLYCERIN [Concomitant]
  19. CITRACAL [Concomitant]
  20. REQUIP [Concomitant]
     Dosage: UNK, QD
  21. LIPITOR [Concomitant]
     Dosage: UNK, QD
  22. FISH OIL [Concomitant]
     Dosage: UNK, QD

REACTIONS (7)
  - FALL [None]
  - HAND FRACTURE [None]
  - THROMBOSIS [None]
  - WRIST FRACTURE [None]
  - BONE FRAGMENTATION [None]
  - PAIN [None]
  - CLAVICLE FRACTURE [None]
